FAERS Safety Report 9337362 (Version 2)
Quarter: 2013Q2

REPORT INFORMATION
  Report Type: Spontaneous
  Country: FR (occurrence: FR)
  Receive Date: 20130607
  Receipt Date: 20130628
  Transmission Date: 20140414
  Serious: Yes (Death, Hospitalization)
  Sender: FDA-Public Use
  Company Number: FR-GLAXOSMITHKLINE-B0896025A

PATIENT
  Age: 84 Year
  Sex: Male
  Weight: 85 kg

DRUGS (8)
  1. ARIXTRA [Suspect]
     Indication: CEREBROVASCULAR ACCIDENT PROPHYLAXIS
     Dosage: 5MG PER DAY
     Route: 058
     Dates: start: 201304, end: 20130527
  2. TRIATEC [Concomitant]
     Indication: HYPERTENSION
  3. CRESTOR [Concomitant]
     Indication: HYPERCHOLESTEROLAEMIA
  4. LASILIX [Concomitant]
     Indication: HYPERTENSION
  5. PREVISCAN [Concomitant]
     Indication: CARDIAC PACEMAKER INSERTION
     Dates: end: 201304
  6. SPIRIVA [Concomitant]
     Indication: CHRONIC RESPIRATORY FAILURE
  7. SERETIDE [Concomitant]
     Indication: CHRONIC RESPIRATORY FAILURE
  8. CARDENSIEL [Concomitant]
     Indication: HYPERTENSION

REACTIONS (8)
  - Haemorrhage intracranial [Fatal]
  - Coma [Not Recovered/Not Resolved]
  - Altered state of consciousness [Not Recovered/Not Resolved]
  - Brain herniation [Fatal]
  - Off label use [Unknown]
  - Traumatic haematoma [Fatal]
  - Cerebellar haematoma [Fatal]
  - Hydrocephalus [Unknown]
